FAERS Safety Report 12085305 (Version 1)
Quarter: 2016Q1

REPORT INFORMATION
  Report Type: Spontaneous
  Country: IN (occurrence: IN)
  Receive Date: 20160217
  Receipt Date: 20160217
  Transmission Date: 20160526
  Serious: Yes (Hospitalization, Other)
  Sender: FDA-Public Use
  Company Number: IN-WATSON-2016-03096

PATIENT
  Age: 50 Year
  Sex: Female

DRUGS (2)
  1. TRIMETHOPRIM-SULFAMETHOXAZOLE (UNKNOWN) [Suspect]
     Active Substance: SULFAMETHOXAZOLE\TRIMETHOPRIM
     Route: 042
  2. TRIMETHOPRIM-SULFAMETHOXAZOLE (UNKNOWN) [Suspect]
     Active Substance: SULFAMETHOXAZOLE\TRIMETHOPRIM
     Indication: PNEUMOCYSTIS JIROVECII PNEUMONIA
     Dosage: 800 MG OF SULFAMETHOXAZOLE AND 160 MG OF TRIMETHOPRIM
     Route: 048

REACTIONS (3)
  - Crystalluria [Recovered/Resolved]
  - Acute kidney injury [Recovered/Resolved]
  - Pancreatitis acute [Recovering/Resolving]
